FAERS Safety Report 7687298-1 (Version None)
Quarter: 2011Q3

REPORT INFORMATION
  Report Type: 
  Country: None (occurrence: None)
  Receive Date: 20110816
  Receipt Date: 20110803
  Transmission Date: 20111222
  Serious: Yes (Hospitalization)
  Sender: FDA-Public Use
  Company Number: DE-MYLANLABS-2011S1016161

PATIENT
  Age: 7 Month
  Sex: Male

DRUGS (5)
  1. CAPTOPRIL [Concomitant]
     Route: 065
  2. FUROSEMIDE [Concomitant]
     Route: 065
  3. PROPRANOLOL [Suspect]
     Indication: CARDIAC FAILURE
     Dosage: 0.3 MG/KG/DAY (0.1 MG/KG/DOSE)
     Route: 065
  4. DIGOXIN [Concomitant]
     Route: 065
  5. SPIRONOLACTONE [Concomitant]
     Route: 065

REACTIONS (3)
  - HEPATIC FAILURE [None]
  - PULMONARY OEDEMA [None]
  - IMMUNE SYSTEM DISORDER [None]
